FAERS Safety Report 5893487-9 (Version None)
Quarter: 2008Q3

REPORT INFORMATION
  Report Type: 
  Country: None (occurrence: None)
  Receive Date: 20080919
  Receipt Date: 20080909
  Transmission Date: 20090109
  Serious: Yes (Other)
  Sender: FDA-Public Use
  Company Number: B0537203A

PATIENT
  Sex: Female

DRUGS (5)
  1. LAMOTRIGINE [Suspect]
     Dosage: 100 MG / PER DAY /
  2. ASPIRIN [Suspect]
  3. CARBAMAZEPINE [Suspect]
     Dosage: 200 MG / TWICE PER DAY /
  4. ACETAZOLAMIDE [Suspect]
     Dosage: 250 MG / PER DAY /
  5. HEPARIN [Suspect]

REACTIONS (2)
  - DRUG EXPOSURE DURING PREGNANCY [None]
  - POSTPARTUM HAEMORRHAGE [None]
